FAERS Safety Report 9034336 (Version 1)
Quarter: 2013Q1

REPORT INFORMATION
  Report Type: Spontaneous
  Country: US (occurrence: US)
  Receive Date: 20130128
  Receipt Date: 20130128
  Transmission Date: 20140127
  Serious: Yes (Hospitalization, Other)
  Sender: FDA-Public Use
  Company Number: US-AMGEN-USASP2012069519

PATIENT
  Sex: Female

DRUGS (9)
  1. ENBREL [Suspect]
     Indication: PSORIASIS
     Dosage: 50 MG, QWK
     Route: 058
     Dates: start: 2009
  2. ENBREL [Suspect]
     Indication: PSORIATIC ARTHROPATHY
  3. HUMIRA [Concomitant]
     Dosage: UNK
     Dates: start: 2008, end: 2008
  4. REMICADE [Concomitant]
     Dosage: UNK
     Dates: start: 2008, end: 2008
  5. PRILOSEC                           /00661201/ [Concomitant]
     Dosage: 20 MG, QD
     Route: 048
  6. BUSPAR [Concomitant]
     Dosage: 7.5 MG, QD
     Route: 048
  7. MELOXICAM [Concomitant]
     Dosage: 15 MG, QD
     Route: 048
  8. SULFASALAZINE [Concomitant]
     Dosage: 500 MG, QD
     Route: 048
  9. METFORMINE [Concomitant]
     Dosage: 500 MG, BID
     Route: 048

REACTIONS (6)
  - Hepatic enzyme increased [Recovered/Resolved]
  - Staphylococcal infection [Recovered/Resolved]
  - Pain in extremity [Not Recovered/Not Resolved]
  - Restless legs syndrome [Recovered/Resolved]
  - Fibromyalgia [Not Recovered/Not Resolved]
  - Psoriasis [Recovered/Resolved]
